FAERS Safety Report 5902572-4 (Version None)
Quarter: 2008Q3

REPORT INFORMATION
  Report Type: 
  Country: None (occurrence: None)
  Receive Date: 20080925
  Receipt Date: 20080916
  Transmission Date: 20090109
  Serious: Yes (Hospitalization, Other)
  Sender: FDA-Public Use
  Company Number: 2008AL007655

PATIENT
  Age: 77 Year
  Sex: Female
  Weight: 68.9467 kg

DRUGS (9)
  1. DIGOXIN [Suspect]
     Dosage: DAILY, PO
     Route: 048
  2. PLAVIX [Concomitant]
  3. ASPIRIN [Concomitant]
  4. LOVASTATIN [Concomitant]
  5. AMIODARONE [Concomitant]
  6. RENAGEL [Concomitant]
  7. FUROSEMIDE [Concomitant]
  8. ELAVIL [Concomitant]
  9. CARVEDILOL [Concomitant]

REACTIONS (2)
  - DYSPNOEA [None]
  - RENAL FAILURE [None]
